FAERS Safety Report 25009327 (Version 1)
Quarter: 2025Q1

REPORT INFORMATION
  Report Type: Spontaneous
  Country: US (occurrence: US)
  Receive Date: 20250225
  Receipt Date: 20250225
  Transmission Date: 20250408
  Serious: Yes (Hospitalization, Other)
  Sender: MUNDIPHARMA EDO
  Company Number: US-NAPPMUNDI-GBR-2025-0123624

PATIENT
  Age: 57 Year
  Sex: Male

DRUGS (2)
  1. REZAFUNGIN ACETATE [Suspect]
     Active Substance: REZAFUNGIN ACETATE
     Indication: Fungaemia
  2. REZAFUNGIN ACETATE [Suspect]
     Active Substance: REZAFUNGIN ACETATE
     Dosage: 200 MILLIGRAM, WEEKLY

REACTIONS (1)
  - Sepsis [Unknown]
